FAERS Safety Report 10444578 (Version 4)
Quarter: 2015Q2

REPORT INFORMATION
  Report Type: Report from Study
  Country: US (occurrence: US)
  Receive Date: 20140910
  Receipt Date: 20150518
  Transmission Date: 20150821
  Serious: No
  Sender: FDA-Public Use
  Company Number: US-ALEXION-A201403437

PATIENT

DRUGS (1)
  1. SOLIRIS [Suspect]
     Active Substance: ECULIZUMAB
     Indication: HAEMOLYTIC URAEMIC SYNDROME
     Dosage: UNK
     Route: 042

REACTIONS (9)
  - Vomiting [Recovered/Resolved]
  - Confusional state [Unknown]
  - Abdominal pain [Recovered/Resolved]
  - Abnormal behaviour [Unknown]
  - Arthropod bite [Unknown]
  - Somnolence [Unknown]
  - Psychomotor hyperactivity [Unknown]
  - Staphylococcal infection [Not Recovered/Not Resolved]
  - Dysarthria [Recovered/Resolved]

NARRATIVE: CASE EVENT DATE: 20140830
